FAERS Safety Report 24965808 (Version 2)
Quarter: 2025Q2

REPORT INFORMATION
  Report Type: Spontaneous
  Country: US (occurrence: US)
  Receive Date: 20250213
  Receipt Date: 20250415
  Transmission Date: 20250717
  Serious: Yes (Death, Hospitalization)
  Sender: MYLAN
  Company Number: US-MYLANLABS-2025M1011888

PATIENT
  Age: 6 Month
  Sex: Male

DRUGS (15)
  1. EPINEPHRINE [Suspect]
     Active Substance: EPINEPHRINE
     Indication: Vasopressive therapy
  2. MILRINONE [Suspect]
     Active Substance: MILRINONE
     Indication: Vasopressive therapy
  3. RIBOFLAVIN [Suspect]
     Active Substance: RIBOFLAVIN
     Indication: ACAD9 deficiency
     Dosage: 20 MILLIGRAM/KILOGRAM, QD (IN THREE DOSES)
  4. RIBOFLAVIN [Suspect]
     Active Substance: RIBOFLAVIN
     Dosage: 50 MILLIGRAM/KILOGRAM, QD
  5. COENZYME Q10 [Suspect]
     Active Substance: DIETARY SUPPLEMENT\UBIDECARENONE
     Indication: ACAD9 deficiency
  6. CALCIUM PYRUVATE [Suspect]
     Active Substance: CALCIUM PYRUVATE
     Indication: ACAD9 deficiency
     Dosage: 900 MILLIGRAM/KILOGRAM, QD
  7. GABAPENTIN [Concomitant]
     Active Substance: GABAPENTIN
     Indication: Product used for unknown indication
  8. NICOTINAMIDE RIBOSIDE CHLORIDE [Concomitant]
     Active Substance: NICOTINAMIDE RIBOSIDE CHLORIDE
     Indication: ACAD9 deficiency
     Dosage: 300 MILLIGRAM, BID (VIA NASOGASTRIC TUBE)
  9. BEZAFIBRATE [Concomitant]
     Active Substance: BEZAFIBRATE
     Indication: ACAD9 deficiency
     Dosage: 100 MILLIGRAM, BID
  10. BEZAFIBRATE [Concomitant]
     Active Substance: BEZAFIBRATE
     Dosage: 150 MILLIGRAM, BID
  11. BEZAFIBRATE [Concomitant]
     Active Substance: BEZAFIBRATE
     Dosage: 200 MILLIGRAM, BID
  12. BEZAFIBRATE [Concomitant]
     Active Substance: BEZAFIBRATE
     Dosage: 300 MILLIGRAM, BID
  13. CARVEDILOL [Concomitant]
     Active Substance: CARVEDILOL
     Indication: Vasopressive therapy
  14. ENALAPRIL [Concomitant]
     Active Substance: ENALAPRIL
     Indication: Cardiac failure
  15. TRIHEPTANOIN [Concomitant]
     Active Substance: TRIHEPTANOIN
     Indication: Product used for unknown indication

REACTIONS (2)
  - Drug ineffective [Fatal]
  - Off label use [Unknown]
